FAERS Safety Report 4912966-1 (Version None)
Quarter: 2006Q1

REPORT INFORMATION
  Report Type: 
  Country: None (occurrence: None)
  Receive Date: 20060210
  Receipt Date: 20060130
  Transmission Date: 20060701
  Serious: Yes (Other)
  Sender: FDA-Public Use
  Company Number: 2005-09-1507

PATIENT
  Age: 49 Year
  Sex: Female
  Weight: 99.7913 kg

DRUGS (12)
  1. ALBUTEROL [Suspect]
     Indication: ASTHMA
     Dosage: INHALATION
     Route: 055
     Dates: start: 19900101
  2. ALBUTEROL [Suspect]
     Indication: ASTHMA
     Dosage: 2 PUFFS PRN INHALATION
     Route: 055
  3. ATROVENT [Suspect]
     Indication: ASTHMA
     Dosage: 2 PUFFS QID
     Dates: start: 19900101
  4. LEVALBUTEROL HCL [Suspect]
     Indication: ASTHMA
     Dates: start: 19900101
  5. PREDNISONE [Concomitant]
  6. MIRAPEX [Concomitant]
  7. SINGULAIR [Concomitant]
  8. TILADE [Concomitant]
  9. ATROVENT [Concomitant]
  10. ULTRAM [Concomitant]
  11. NEURONTIN [Concomitant]
  12. ASTELIN [Concomitant]

REACTIONS (12)
  - AORTIC VALVE INCOMPETENCE [None]
  - CHEST DISCOMFORT [None]
  - CHEST PAIN [None]
  - ELECTROCARDIOGRAM ST SEGMENT ELEVATION [None]
  - FIBRIN D DIMER INCREASED [None]
  - HEPATIC FUNCTION ABNORMAL [None]
  - MITRAL VALVE INCOMPETENCE [None]
  - PERICARDIAL EFFUSION [None]
  - PULMONARY ARTERIAL WEDGE PRESSURE INCREASED [None]
  - SNORING [None]
  - TRICUSPID VALVE INCOMPETENCE [None]
  - UPPER AIRWAY RESISTANCE SYNDROME [None]
